FAERS Safety Report 20909789 (Version 1)
Quarter: 2022Q2

REPORT INFORMATION
  Report Type: Spontaneous
  Country: NL (occurrence: NL)
  Receive Date: 20220603
  Receipt Date: 20220603
  Transmission Date: 20220721
  Serious: Yes (Hospitalization)
  Sender: FDA-Public Use
  Company Number: None

PATIENT
  Sex: Male
  Weight: 70 kg

DRUGS (15)
  1. AMOXICILLIN\CLAVULANATE POTASSIUM [Suspect]
     Active Substance: AMOXICILLIN\CLAVULANATE POTASSIUM
     Indication: Staphylococcal bacteraemia
     Dosage: 1 DOSAGE FORM, Q6H, (4 X DAAGS)
     Route: 065
     Dates: start: 20220306, end: 20220307
  2. METFORMIN HYDROCHLORIDE [Concomitant]
     Active Substance: METFORMIN HYDROCHLORIDE
     Indication: Product used for unknown indication
     Dosage: 500 MG, Q12H, (2 DD 1)
     Route: 048
     Dates: start: 20220303, end: 20220309
  3. GLICLAZIDE [Concomitant]
     Active Substance: GLICLAZIDE
     Indication: Product used for unknown indication
     Dosage: 60 MG, QD, (1 DD 1)
     Route: 048
     Dates: start: 20220303, end: 20220325
  4. ENOXAPARIN [Concomitant]
     Active Substance: ENOXAPARIN
     Indication: Product used for unknown indication
     Dosage: 4000 IU, QD, ( 10.000IE/ML (100 MG/ML, 4000 IE 1 X DAAGS)
     Route: 065
     Dates: start: 20220303, end: 20220309
  5. IBUPROFEN [Concomitant]
     Active Substance: IBUPROFEN
     Indication: Product used for unknown indication
     Dosage: 600 MG, (ZN 3 DD 1)
     Route: 048
     Dates: start: 20220305, end: 20220307
  6. TEMAZEPAM [Concomitant]
     Active Substance: TEMAZEPAM
     Indication: Product used for unknown indication
     Dosage: 10 MG, QD, (1  DD 1)
     Route: 048
     Dates: start: 20220304, end: 20220316
  7. CYANOCOBALAMIN\PYRIDOXINE HYDROCHLORIDE\RIBOFLAVIN\SODIUM PANTOTHENATE [Concomitant]
     Active Substance: CYANOCOBALAMIN\PYRIDOXINE HYDROCHLORIDE\RIBOFLAVIN\SODIUM PANTOTHENATE\THIAMINE HYDROCHLORIDE\VITAMI
     Indication: Product used for unknown indication
     Dosage: 1 DOSAGE FORM, QD, (1 DD 1)
     Route: 048
     Dates: start: 20220304, end: 20220411
  8. TRAMADOL [Concomitant]
     Active Substance: TRAMADOL
     Indication: Product used for unknown indication
     Dosage: 50 MG, (ZN 3 DD 1)
     Route: 048
     Dates: start: 20220307, end: 20220311
  9. ACETAMINOPHEN [Concomitant]
     Active Substance: ACETAMINOPHEN
     Indication: Product used for unknown indication
     Dosage: 1000 MG (6 MIN, 4 DD 2)
     Route: 048
     Dates: start: 20220303, end: 20220311
  10. INSULIN GLARGINE [Concomitant]
     Active Substance: INSULIN GLARGINE
     Indication: Product used for unknown indication
     Dosage: 8 IU, QD, (100E/ML, 1 DD 8 E)
     Route: 058
     Dates: start: 20220305, end: 20220314
  11. INSULIN ASPART [Concomitant]
     Active Substance: INSULIN ASPART
     Indication: Product used for unknown indication
     Dosage: UNK
     Route: 058
     Dates: start: 20220303, end: 20220417
  12. ASCORBINEZUUR [Concomitant]
     Indication: Product used for unknown indication
     Dosage: 500 MG, (1 DD 1)
     Route: 048
     Dates: start: 20220304, end: 20220314
  13. THIAMINE [Concomitant]
     Active Substance: THIAMINE
     Indication: Product used for unknown indication
     Dosage: 25 MG, Q6H, (4 DD  0.5 STUKS)
     Route: 048
     Dates: start: 20220304, end: 20220314
  14. ELECTROLYTES NOS [Concomitant]
     Active Substance: ELECTROLYTES NOS
     Indication: Product used for unknown indication
     Dosage: 1000 ML, QD, (1 DD 1000 ML)
     Route: 042
     Dates: start: 20220307, end: 20220311
  15. POLYETHYLENE GLYCOL 3350\POTASSIUM CHLORIDE\SODIUM BICARBONATE\SODIUM [Concomitant]
     Active Substance: POLYETHYLENE GLYCOL 3350\POTASSIUM CHLORIDE\SODIUM BICARBONATE\SODIUM CHLORIDE
     Indication: Product used for unknown indication
     Dosage: 1 DOSAGE FORM, QD, (1 DD)
     Route: 048
     Dates: start: 20220307, end: 20220312

REACTIONS (2)
  - Tubulointerstitial nephritis [Recovering/Resolving]
  - Renal failure [Recovering/Resolving]
